FAERS Safety Report 23471575 (Version 1)
Quarter: 2024Q1

REPORT INFORMATION
  Report Type: Spontaneous
  Country: US (occurrence: US)
  Receive Date: 20240202
  Receipt Date: 20240202
  Transmission Date: 20240410
  Serious: No
  Sender: FDA-Public Use
  Company Number: US-SANOFI-01922920

PATIENT
  Sex: Female

DRUGS (1)
  1. MULTAQ [Suspect]
     Active Substance: DRONEDARONE
     Dosage: 400 MG BID

REACTIONS (4)
  - Arthritis [Unknown]
  - Arthralgia [Unknown]
  - Ankle fracture [Unknown]
  - Drug ineffective [Unknown]
